FAERS Safety Report 4843058-8 (Version None)
Quarter: 2005Q4

REPORT INFORMATION
  Report Type: 
  Country: None (occurrence: None)
  Receive Date: 20051201
  Receipt Date: 20051020
  Transmission Date: 20060501
  Serious: Yes (Death, Other)
  Sender: FDA-Public Use
  Company Number: US-JNJFOC-20040707886

PATIENT
  Sex: Male

DRUGS (7)
  1. DURAGESIC-100 [Suspect]
     Route: 062
  2. REMERON [Concomitant]
  3. FLURAZEPAM [Concomitant]
  4. ULTRAM [Concomitant]
     Indication: PAIN
  5. PERCOCET [Concomitant]
  6. PERCOCET [Concomitant]
     Indication: PAIN
  7. ZANAFLEX [Concomitant]

REACTIONS (8)
  - ACUTE RESPIRATORY FAILURE [None]
  - CEREBRAL ATROPHY [None]
  - DEVICE FAILURE [None]
  - INCORRECT DOSE ADMINISTERED [None]
  - MYOCARDIAL INFARCTION [None]
  - OVERDOSE [None]
  - SINUS TACHYCARDIA [None]
  - SYNCOPE [None]
